FAERS Safety Report 18900966 (Version 2)
Quarter: 2021Q1

REPORT INFORMATION
  Report Type: Report from Study
  Country: US (occurrence: US)
  Receive Date: 20210217
  Receipt Date: 20210304
  Transmission Date: 20210420
  Serious: Yes (Hospitalization)
  Sender: FDA-Public Use
  Company Number: US-ROCHE-2769544

PATIENT
  Age: 71 Year
  Sex: Male
  Weight: 66.86 kg

DRUGS (3)
  1. OBINUTUZUMAB. [Suspect]
     Active Substance: OBINUTUZUMAB
     Indication: CHRONIC LYMPHOCYTIC LEUKAEMIA
     Dosage: ON C1D1, 900 MG IV ON C1D2, 1000 MG ON C1D8 AND C1D15?LAST DOSE OF OBINUTUZUMAB:08/JUN/2020
     Route: 042
     Dates: start: 20200413
  2. VENETOCLAX. [Suspect]
     Active Substance: VENETOCLAX
     Indication: CHRONIC LYMPHOCYTIC LEUKAEMIA
     Dosage: RECENT DOSE OF VENETOCLAX: 21/JUN/2020
     Route: 048
     Dates: start: 20200413
  3. IBRUTINIB [Suspect]
     Active Substance: IBRUTINIB
     Indication: CHRONIC LYMPHOCYTIC LEUKAEMIA
     Dosage: MOST RECENT DOSE OF IBRUTINIB: 22/JUN/2020
     Route: 048
     Dates: start: 20200413

REACTIONS (5)
  - Dyspnoea [Recovered/Resolved]
  - Atrial tachycardia [Recovered/Resolved]
  - Pneumonia [Recovered/Resolved]
  - Chest pain [Unknown]
  - Hypotension [Recovered/Resolved]

NARRATIVE: CASE EVENT DATE: 20200622
